FAERS Safety Report 14152566 (Version 1)
Quarter: 2017Q4

REPORT INFORMATION
  Report Type: Spontaneous
  Country: JP (occurrence: JP)
  Receive Date: 20171102
  Receipt Date: 20171102
  Transmission Date: 20180321
  Serious: Yes (Death, Hospitalization)
  Sender: FDA-Public Use
  Company Number: JP-JNJFOC-20170903827

PATIENT
  Age: 82 Year
  Sex: Male
  Weight: 51 kg

DRUGS (11)
  1. XARELTO [Suspect]
     Active Substance: RIVAROXABAN
     Indication: CEREBROVASCULAR ACCIDENT PROPHYLAXIS
     Route: 048
  2. MEMANTINE HYDROCHLORIDE. [Concomitant]
     Active Substance: MEMANTINE HYDROCHLORIDE
     Route: 048
  3. MAGMITT [Concomitant]
     Active Substance: MAGNESIUM OXIDE
     Route: 048
  4. APIXABAN [Concomitant]
     Active Substance: APIXABAN
     Route: 050
     Dates: start: 20140908
  5. YOKUKANSAN [Concomitant]
     Active Substance: HERBALS
     Route: 048
  6. XARELTO [Suspect]
     Active Substance: RIVAROXABAN
     Indication: ATRIAL FIBRILLATION
     Route: 048
  7. DONEPEZIL HYDROCHLORIDE. [Concomitant]
     Active Substance: DONEPEZIL HYDROCHLORIDE
     Route: 048
  8. CETIRIZINE HYDROCHLORIDE. [Concomitant]
     Active Substance: CETIRIZINE HYDROCHLORIDE
     Route: 048
  9. DEPAKENE [Concomitant]
     Active Substance: VALPROIC ACID
     Route: 048
  10. PURSENNID [Concomitant]
     Active Substance: SENNOSIDES A AND B
     Route: 048
  11. LOXOPROFEN [Concomitant]
     Active Substance: LOXOPROFEN
     Route: 048

REACTIONS (2)
  - Pneumonia [Fatal]
  - Haemorrhagic infarction [Recovering/Resolving]

NARRATIVE: CASE EVENT DATE: 20140818
